FAERS Safety Report 7818087-2 (Version None)
Quarter: 2011Q4

REPORT INFORMATION
  Report Type: 
  Country: None (occurrence: None)
  Receive Date: 20111017
  Receipt Date: 20111011
  Transmission Date: 20120403
  Serious: Yes (Other)
  Sender: FDA-Public Use
  Company Number: IT-PFIZER INC-2011243359

PATIENT
  Age: 45 Year
  Sex: Female

DRUGS (5)
  1. FLUOROURACIL [Suspect]
     Indication: BREAST CANCER
     Dosage: 1032 MG, CYCLIC
     Route: 042
     Dates: start: 20110725
  2. EPIRUBICIN HYDROCHLORIDE [Suspect]
     Indication: BREAST CANCER
     Dosage: 130 MG, CYCLIC
     Route: 042
     Dates: start: 20110725
  3. KYTRIL [Concomitant]
  4. CYCLOPHOSPHAMIDE [Suspect]
     Indication: BREAST CANCER
     Dosage: 1032 MG, CYCLIC
     Route: 042
     Dates: start: 20110725
  5. DECADRON [Concomitant]

REACTIONS (3)
  - NEUTROPENIA [None]
  - CONSTIPATION [None]
  - STOMATITIS [None]
